FAERS Safety Report 22140700 (Version 2)
Quarter: 2023Q1

REPORT INFORMATION
  Report Type: Spontaneous
  Country: JP (occurrence: JP)
  Receive Date: 20230327
  Receipt Date: 20230330
  Transmission Date: 20230418
  Serious: No
  Sender: FDA-Public Use
  Company Number: JP-PFIZER INC-202300064621

PATIENT
  Age: 77 Year
  Sex: Male

DRUGS (15)
  1. VFEND [Suspect]
     Active Substance: VORICONAZOLE
     Indication: Aspergillus infection
     Dosage: 150 MG, TWICE A DAY
     Route: 048
     Dates: start: 20221219, end: 20230122
  2. VFEND [Suspect]
     Active Substance: VORICONAZOLE
     Dosage: 150 MG, TWICE A DAY
     Route: 048
     Dates: start: 20230123, end: 20230213
  3. MOSAPRIDE [Concomitant]
     Active Substance: MOSAPRIDE
     Indication: Abdominal discomfort
     Dosage: 5 MG, 3X/DAY
  4. BETAHISTINE [Concomitant]
     Active Substance: BETAHISTINE
     Indication: Dizziness
     Dosage: 6 MG, 3X/DAY
  5. LIMAPROST [Concomitant]
     Active Substance: LIMAPROST
     Indication: Pain
     Dosage: 5 UG, 3X/DAY
  6. LIMAPROST [Concomitant]
     Active Substance: LIMAPROST
     Indication: Feeling cold
  7. ADETPHOS [Concomitant]
     Active Substance: ADENOSINE TRIPHOSPHATE
     Indication: Dizziness
     Dosage: 1 G, 3X/DAY
  8. CAMOSTAT [Concomitant]
     Active Substance: CAMOSTAT
     Indication: Pancreatitis
     Dosage: 100 MG, 3X/DAY
  9. MAGNESIUM OXIDE [Concomitant]
     Active Substance: MAGNESIUM OXIDE
     Indication: Constipation
     Dosage: 660 MG, 3X/DAY
  10. AMLODIPINE [Concomitant]
     Active Substance: AMLODIPINE BESYLATE
     Indication: Hypertension
     Dosage: 2.5 MG, 1X/DAY
  11. BIO-THREE [Concomitant]
     Active Substance: HERBALS
     Indication: Constipation
     Dosage: 3 DF, 3X/DAY
  12. PANCRELIPASE [Concomitant]
     Active Substance: PANCRELIPASE
     Indication: Abdominal discomfort
     Dosage: 3 DF, 3X/DAY
  13. LANSOPRAZOLE [Concomitant]
     Active Substance: LANSOPRAZOLE
     Indication: Gastrooesophageal reflux disease
     Dosage: 15 MG, 1X/DAY
  14. DUTASTERIDE [Concomitant]
     Active Substance: DUTASTERIDE
     Indication: Dysuria
     Dosage: 0.5 MG, 1X/DAY
  15. TAMSULOSIN [Concomitant]
     Active Substance: TAMSULOSIN
     Indication: Benign prostatic hyperplasia
     Dosage: 0.2 MG, 1X/DAY

REACTIONS (3)
  - Erythema [Recovered/Resolved]
  - Rash papular [Recovered/Resolved]
  - Drug eruption [Recovered/Resolved]

NARRATIVE: CASE EVENT DATE: 20230201
